FAERS Safety Report 5584580-9 (Version None)
Quarter: 2007Q4

REPORT INFORMATION
  Report Type: 
  Country: None (occurrence: None)
  Receive Date: 20071130
  Receipt Date: 20061017
  Transmission Date: 20080405
  Serious: Yes (Disabling, Other)
  Sender: FDA-Public Use
  Company Number: WAES 0608USA01596

PATIENT
  Age: 73 Year
  Sex: Female
  Weight: 83.0083 kg

DRUGS (6)
  1. FOSAMAX [Suspect]
     Indication: OSTEOPOROSIS
     Dosage: 70 MG/WKY/PO
     Route: 048
     Dates: start: 20030101, end: 20060605
  2. LIPITOR [Concomitant]
  3. SULFAZIN [Concomitant]
  4. ULTRAM [Concomitant]
  5. FOLIC ACID [Concomitant]
  6. METHOTREXATE [Concomitant]

REACTIONS (2)
  - PAIN IN JAW [None]
  - TUBERCULOSIS SKIN TEST POSITIVE [None]
